FAERS Safety Report 5252060-6 (Version None)
Quarter: 2007Q1

REPORT INFORMATION
  Report Type: 
  Country: None (occurrence: None)
  Receive Date: 20070227
  Receipt Date: 20070219
  Transmission Date: 20070707
  Serious: Yes (Other)
  Sender: FDA-Public Use
  Company Number: 2006SP000535

PATIENT
  Sex: Male

DRUGS (1)
  1. NASONEX [Suspect]
     Indication: DRUG USE FOR UNKNOWN INDICATION
     Dosage: NAS
     Route: 045
     Dates: start: 19970101

REACTIONS (1)
  - CATARACT [None]
